FAERS Safety Report 19971144 (Version 1)
Quarter: 2021Q4

REPORT INFORMATION
  Report Type: Spontaneous
  Country: IT (occurrence: IT)
  Receive Date: 20211020
  Receipt Date: 20211020
  Transmission Date: 20220303
  Serious: Yes (Other)
  Sender: FDA-Public Use
  Company Number: IT-ABBVIE-21K-083-4125706-00

PATIENT
  Sex: Male
  Weight: 60 kg

DRUGS (3)
  1. VALPROIC ACID [Suspect]
     Active Substance: VALPROIC ACID
     Indication: Bipolar I disorder
     Route: 048
     Dates: start: 20190312, end: 20190318
  2. PROMAZINE [Concomitant]
     Active Substance: PROMAZINE
     Indication: Product used for unknown indication
     Dates: start: 20190310, end: 20190318
  3. OLANZAPINE [Concomitant]
     Active Substance: OLANZAPINE
     Indication: Product used for unknown indication
     Dates: start: 20190310, end: 20190318

REACTIONS (1)
  - Neutropenia [Recovered/Resolved]

NARRATIVE: CASE EVENT DATE: 20190318
